FAERS Safety Report 4457155-2 (Version None)
Quarter: 2004Q3

REPORT INFORMATION
  Report Type: 
  Country: None (occurrence: None)
  Receive Date: 20040825
  Receipt Date: 20040601
  Transmission Date: 20050211
  Serious: No
  Sender: FDA-Public Use
  Company Number: 205578

PATIENT
  Age: 63 Year
  Sex: Female
  Weight: 70 kg

DRUGS (2)
  1. RAPTIVA [Suspect]
     Indication: PSORIASIS
     Dosage: 0.7ML, 1/WEEK, SUBCUTANEOUS
     Route: 058
     Dates: start: 20040218
  2. METHOTREAXTE (METHORTREXATE) [Concomitant]

REACTIONS (1)
  - HERPES ZOSTER [None]
